FAERS Safety Report 8621611-3 (Version None)
Quarter: 2012Q3

REPORT INFORMATION
  Report Type: 
  Country: None (occurrence: None)
  Receive Date: 20120820
  Receipt Date: 20120820
  Transmission Date: 20120928
  Serious: Yes (Hospitalization)
  Sender: FDA-Public Use
  Company Number: None

PATIENT
  Sex: Female
  Weight: 65.7716 kg

DRUGS (1)
  1. COUMADIN [Suspect]
     Indication: DRUG DISPENSING ERROR
     Dosage: 2 TABLETS TWICE A DAY
     Dates: start: 20120715

REACTIONS (4)
  - WRONG DRUG ADMINISTERED [None]
  - CONTUSION [None]
  - FALL [None]
  - DRUG DISPENSING ERROR [None]
